FAERS Safety Report 20014058 (Version 4)
Quarter: 2021Q4

REPORT INFORMATION
  Report Type: Spontaneous
  Country: PT (occurrence: PT)
  Receive Date: 20211029
  Receipt Date: 20211116
  Transmission Date: 20220303
  Serious: Yes (Hospitalization)
  Sender: FDA-Public Use
  Company Number: PT-MYLANLABS-2021M1045549

PATIENT
  Age: 68 Year
  Sex: Male

DRUGS (4)
  1. ZOLEDRONIC ACID [Suspect]
     Active Substance: ZOLEDRONIC ACID
     Indication: Hypercalcaemia
     Dosage: UNK
  2. ZOLEDRONIC ACID [Suspect]
     Active Substance: ZOLEDRONIC ACID
     Dosage: 4 MILLIGRAM
  3. CINACALCET HYDROCHLORIDE [Interacting]
     Active Substance: CINACALCET HYDROCHLORIDE
     Indication: Hyperparathyroidism
     Dosage: 30 MILLIGRAM, QD
     Route: 048
  4. CINACALCET HYDROCHLORIDE [Interacting]
     Active Substance: CINACALCET HYDROCHLORIDE
     Indication: Hyperparathyroidism primary

REACTIONS (3)
  - Hypocalcaemia [Recovered/Resolved]
  - Potentiating drug interaction [Unknown]
  - Off label use [Unknown]
